FAERS Safety Report 19934991 (Version 2)
Quarter: 2021Q4

REPORT INFORMATION
  Report Type: Spontaneous
  Country: IE (occurrence: IE)
  Receive Date: 20211008
  Receipt Date: 20211020
  Transmission Date: 20220303
  Serious: Yes (Other)
  Sender: FDA-Public Use
  Company Number: None

PATIENT
  Sex: Female

DRUGS (1)
  1. MIRENA [Suspect]
     Active Substance: LEVONORGESTREL
     Indication: Product used for unknown indication
     Dosage: 20 ?G, CONT
     Route: 015

REACTIONS (4)
  - Device breakage [Unknown]
  - Complication of device insertion [Unknown]
  - Embedded device [Unknown]
  - Abdominal pain [Unknown]
